FAERS Safety Report 6521559-4 (Version None)
Quarter: 2009Q4

REPORT INFORMATION
  Report Type: 
  Country: None (occurrence: None)
  Receive Date: 20091222
  Receipt Date: 20091209
  Transmission Date: 20100525
  Serious: Yes (Hospitalization, Other)
  Sender: FDA-Public Use
  Company Number: 234016J09USA

PATIENT
  Age: 20 Year
  Sex: Female

DRUGS (3)
  1. REBIF [Suspect]
     Indication: MULTIPLE SCLEROSIS
     Dosage: 44 MCG, 2 IN 1 WEEKS, SUBCUTANEOUS
     Route: 058
     Dates: start: 20091015
  2. TRAMADOL HCL [Concomitant]
  3. IBUPROFEN [Concomitant]

REACTIONS (8)
  - BLOOD GLUCOSE INCREASED [None]
  - BRAIN OEDEMA [None]
  - COAGULOPATHY [None]
  - GASTRIC ULCER HAEMORRHAGE [None]
  - IMMUNE SYSTEM DISORDER [None]
  - INCORRECT DOSE ADMINISTERED [None]
  - MULTIPLE SCLEROSIS RELAPSE [None]
  - NUCLEAR MAGNETIC RESONANCE IMAGING BRAIN ABNORMAL [None]
